FAERS Safety Report 13032592 (Version 2)
Quarter: 2016Q4

REPORT INFORMATION
  Report Type: Spontaneous
  Country: US (occurrence: US)
  Receive Date: 20161215
  Receipt Date: 20161223
  Transmission Date: 20170207
  Serious: No
  Sender: FDA-Public Use
  Company Number: US-PFIZER INC-2016579951

PATIENT
  Age: 47 Year
  Sex: Male
  Weight: 99 kg

DRUGS (1)
  1. VIAGRA [Suspect]
     Active Substance: SILDENAFIL CITRATE
     Dosage: 25 MG, 1X/DAY
     Route: 048
     Dates: start: 201609

REACTIONS (2)
  - Ejaculation disorder [Unknown]
  - Erection increased [Unknown]

NARRATIVE: CASE EVENT DATE: 201610
